FAERS Safety Report 8318100-2 (Version None)
Quarter: 2012Q2

REPORT INFORMATION
  Report Type: 
  Country: None (occurrence: None)
  Receive Date: 20120427
  Receipt Date: 20120413
  Transmission Date: 20120825
  Serious: Yes (Hospitalization)
  Sender: FDA-Public Use
  Company Number: US-ROCHE-1059674

PATIENT
  Sex: Female
  Weight: 55.5 kg

DRUGS (22)
  1. VALCYTE [Concomitant]
     Route: 048
  2. MAGNESIUM PLUS PROTEIN [Concomitant]
     Dosage: 2 TABLETS THREE TIMES A DAY
     Route: 048
  3. DIAVONEX [Concomitant]
     Dosage: 2 TABLETS
     Route: 048
  4. CALCIDOSE VITAMINE D [Concomitant]
  5. BENADRYL [Concomitant]
     Dosage: AS NEED
  6. MABTHERA [Suspect]
     Indication: CHRONIC GRAFT VERSUS HOST DISEASE
  7. PRILOSEC [Concomitant]
     Route: 048
  8. BUMEX [Concomitant]
     Route: 048
  9. MYCOPHENOLATE MOFETIL (CELLCEPT) [Concomitant]
     Route: 048
  10. VFEND [Concomitant]
     Route: 048
  11. PENTAMIDINE [Concomitant]
  12. PEN-VEE K [Concomitant]
     Route: 048
  13. NORVASC [Concomitant]
     Route: 048
  14. LABETALOL HCL [Concomitant]
  15. CELEXA [Concomitant]
     Route: 048
  16. SIROLIMUS [Concomitant]
     Route: 048
  17. PROGRAF [Concomitant]
  18. POTASSIUM CHLORIDE [Concomitant]
     Route: 048
  19. TRILIPIX [Concomitant]
  20. LOMOTIL [Concomitant]
     Dosage: 2 TABLETS
     Route: 048
  21. ENTOCORT EC [Concomitant]
     Route: 048
  22. BECLOMETHASONE DIPROPIONATE [Concomitant]
     Dosage: 1 MG/ML5 MG SWISH AND TWICE A DAY

REACTIONS (1)
  - FEBRILE NEUTROPENIA [None]
